FAERS Safety Report 21418290 (Version 3)
Quarter: 2023Q1

REPORT INFORMATION
  Report Type: Spontaneous
  Country: JP (occurrence: JP)
  Receive Date: 20221006
  Receipt Date: 20230131
  Transmission Date: 20230418
  Serious: Yes (Death, Hospitalization, Other)
  Sender: FDA-Public Use
  Company Number: JP-PFIZER INC-PV202200071988

PATIENT
  Age: 76 Year
  Sex: Female
  Weight: 67.6 kg

DRUGS (13)
  1. XELJANZ [Suspect]
     Active Substance: TOFACITINIB CITRATE
     Indication: Rheumatoid arthritis
     Dosage: 5 MG, 2X/DAY
     Route: 048
     Dates: start: 20200531, end: 20220917
  2. PREDNISOLONE [Suspect]
     Active Substance: PREDNISOLONE
     Indication: Rheumatoid arthritis
     Dosage: 0.5 MG, 2X/DAY
     Route: 048
     Dates: start: 20200531, end: 20220926
  3. METHYLCOBALAMIN [Concomitant]
     Active Substance: METHYLCOBALAMIN
     Indication: Neuralgia
     Dosage: 0.5 MG, 2X/DAY
     Route: 048
  4. LYRICA [Concomitant]
     Active Substance: PREGABALIN
     Indication: Neuralgia
     Dosage: 75 MG + 25 MG, 1X/DAY
     Route: 048
  5. ETODOLAC [Concomitant]
     Active Substance: ETODOLAC
     Indication: Neuralgia
     Dosage: 200 MG, 2X/DAY
     Route: 048
  6. EPERISONE [EPERISONE HYDROCHLORIDE] [Concomitant]
     Indication: Neuralgia
     Dosage: 50 MG, 2X/DAY
     Route: 048
  7. REBAMIPIDE [Concomitant]
     Active Substance: REBAMIPIDE
     Indication: Gastritis
     Dosage: 100 MG, 2X/DAY
     Route: 048
  8. OMEPRAZOLE SAWAI [Concomitant]
     Indication: Gastritis
     Dosage: 20 MG, 1X/DAY
     Route: 048
  9. IRBESARTAN DSPB [Concomitant]
     Indication: Hypertension
     Dosage: 100 MG, 1X/DAY
     Route: 048
  10. MAGNESIUM OXIDE [Concomitant]
     Active Substance: MAGNESIUM OXIDE
     Indication: Constipation
     Dosage: 330 MG, 1X/DAY
     Route: 048
  11. CALONAL [Concomitant]
     Active Substance: ACETAMINOPHEN
     Indication: Pain
     Dosage: 400 MG, AS NEEDED
     Route: 048
  12. NEXIUM [Concomitant]
     Active Substance: ESOMEPRAZOLE MAGNESIUM
  13. PREDONINE [Concomitant]
     Active Substance: PREDNISOLONE

REACTIONS (8)
  - Pneumonia bacterial [Fatal]
  - Febrile neutropenia [Fatal]
  - White blood cell count decreased [Fatal]
  - Hyponatraemia [Fatal]
  - Myelosuppression [Unknown]
  - Pyrexia [Unknown]
  - Nausea [Unknown]
  - C-reactive protein increased [Unknown]

NARRATIVE: CASE EVENT DATE: 20220723
